FAERS Safety Report 5131184-8 (Version None)
Quarter: 2006Q4

REPORT INFORMATION
  Report Type: 
  Country: None (occurrence: None)
  Receive Date: 20061020
  Receipt Date: 20061012
  Transmission Date: 20070319
  Serious: Yes (Hospitalization)
  Sender: FDA-Public Use
  Company Number: US-JNJFOC-20060803555

PATIENT
  Sex: Female
  Weight: 83.92 kg

DRUGS (4)
  1. REMICADE [Suspect]
     Route: 042
  2. REMICADE [Suspect]
     Indication: COLITIS ULCERATIVE
     Dosage: 2 DOSES ON UNSPECIFIED DATES
     Route: 042
  3. ASACOL [Concomitant]
  4. STEROID [Concomitant]

REACTIONS (1)
  - RHABDOMYOLYSIS [None]
